FAERS Safety Report 17926817 (Version 1)
Quarter: 2020Q2

REPORT INFORMATION
  Report Type: Spontaneous
  Country: ES (occurrence: ES)
  Receive Date: 20200623
  Receipt Date: 20200623
  Transmission Date: 20200714
  Serious: Yes (Other)
  Sender: FDA-Public Use
  Company Number: ES-AUROBINDO-AUR-APL-2020-030632

PATIENT
  Age: 88 Year
  Sex: Female

DRUGS (3)
  1. SPIRONOLACTONE. [Interacting]
     Active Substance: SPIRONOLACTONE
     Indication: LIVER DISORDER
     Dosage: 25 MILLIGRAM, ONCE A DAY
     Route: 048
     Dates: start: 20191121, end: 20191210
  2. AMIODARONE [Suspect]
     Active Substance: AMIODARONE
     Indication: ATRIAL FIBRILLATION
     Dosage: 200 MILLIGRAM, ONCE A DAY
     Route: 048
     Dates: start: 20191121, end: 20200107
  3. QUETIAPINE. [Interacting]
     Active Substance: QUETIAPINE
     Indication: AGGRESSION
     Dosage: 25 GRAM, ONCE A DAY
     Route: 048
     Dates: start: 20191120, end: 20200107

REACTIONS (1)
  - Hyponatraemia [Recovered/Resolved]

NARRATIVE: CASE EVENT DATE: 20191211
